FAERS Safety Report 9771888 (Version 2)
Quarter: 2013Q4

REPORT INFORMATION
  Report Type: Spontaneous
  Country: GB (occurrence: None)
  Receive Date: 20130927
  Receipt Date: 20131122
  Transmission Date: 20140711
  Serious: Yes (Hospitalization)
  Sender: FDA-Public Use
  Company Number: SYM-2013-10522

PATIENT
  Age: 72 Year
  Sex: Female

DRUGS (11)
  1. 5 FU [Suspect]
     Indication: COLORECTAL CANCER METASTATIC
     Dosage: 750, EVERY OTHER WEEK
     Route: 040
     Dates: start: 20130226, end: 20130226
  2. AFLIBERCEPT (AFLIBERCEPT) (SOLUTION FOR INFUSION) (AFLIBERCEPT) [Suspect]
     Indication: COLORECTAL CANCER METASTATIC
     Route: 042
     Dates: start: 20130226, end: 20130226
  3. IRINOTECAN (IRINOTECAN) (SOLUTION FOR INFUSION) (IRINOTECAN) [Suspect]
     Indication: COLORECTAL CANCER METASTATIC
     Route: 042
     Dates: start: 20130226, end: 20130226
  4. LEUCOVORIN (FOLINIC ACID) (SOLUTION FOR INFUSION) (FOLINIC ACID) [Suspect]
     Indication: COLORECTAL CANCER METASTATIC
     Route: 042
     Dates: start: 20130226, end: 20130226
  5. SIMVASTATIN (SIMVASTATIN) (SIMVASTATIN) [Concomitant]
  6. CALCIUM CHANNEL BLOCKERS (CALCIUM CHANNEL BLOCKERS) [Concomitant]
  7. OMEPRAZOLE (OMEPRAZOLE) (OMEPRAZOLE) [Suspect]
  8. ANALGESICS (ANALGESICS) [Concomitant]
  9. CYCLIZINE (CYCLIZINE) (CYCLIZINE) [Concomitant]
  10. CODEINE PHOSPHATE (CODEINE PHOSPHATE) (CODEINE PHOSPHATE) [Concomitant]
  11. FORTISIP (CARBOHYDRATES NOS W/FATS NOS/MINERA/07459601/) (PROTEIN, VITAMINS NOS, MINERALS NOS, CARBOHYDRATES NOS, FATS NOS) [Concomitant]

REACTIONS (3)
  - Febrile neutropenia [None]
  - Lethargy [None]
  - Productive cough [None]
